FAERS Safety Report 25066022 (Version 2)
Quarter: 2025Q4

REPORT INFORMATION
  Report Type: Spontaneous
  Country: EU (occurrence: EU)
  Receive Date: 20250312
  Receipt Date: 20251118
  Transmission Date: 20260117
  Serious: Yes (Other)
  Sender: VELOXIS PHARMACEUTICALS
  Company Number: EU-ROCHE-2712016

PATIENT
  Age: 14 Year
  Sex: Female
  Weight: 50 kg

DRUGS (11)
  1. TACROLIMUS [4]
     Active Substance: TACROLIMUS
     Indication: Nephrotic syndrome
     Dosage: UNK
     Route: 065
  2. RITUXIMAB [Suspect]
     Active Substance: RITUXIMAB
     Indication: Nephrotic syndrome
     Dosage: 375 MILLIGRAM/SQ. METER
  3. PREDNISONE [Suspect]
     Active Substance: PREDNISONE
     Indication: Nephrotic syndrome
     Dosage: 20 MG, QD, AFTER DARATUMUMAB INFUSION
     Route: 065
  4. PREDNISONE [Suspect]
     Active Substance: PREDNISONE
     Dosage: 60 MG/M2, BID
     Route: 065
  5. PREDNISONE [Suspect]
     Active Substance: PREDNISONE
     Dosage: UNK, BID
     Route: 065
  6. METHYLPREDNISOLONE [Suspect]
     Active Substance: METHYLPREDNISOLONE
     Indication: Nephrotic syndrome
     Dosage: 1 MG/KG
     Route: 065
  7. DARATUMUMAB [Suspect]
     Active Substance: DARATUMUMAB
     Indication: Nephrotic syndrome
     Dosage: 1000 MG/1.73 M2 OVER 4 H, AT DAY 14
     Route: 065
  8. OBINUTUZUMAB [Suspect]
     Active Substance: OBINUTUZUMAB
     Indication: Nephrotic syndrome
     Dosage: 1000 MG/1.73 M2 OVER 4 H WAS INJECTED AT DAY 0
  9. DEXCHLORPHENIRAMINE [Concomitant]
     Active Substance: DEXCHLORPHENIRAMINE
     Indication: Product used for unknown indication
     Dosage: UNK
  10. SULFAMETHOXAZOLE [Concomitant]
     Active Substance: SULFAMETHOXAZOLE
     Indication: Product used for unknown indication
     Dosage: 800 MG, 0.33, WEEK
  11. ACETAMINOPHEN [Concomitant]
     Active Substance: ACETAMINOPHEN
     Indication: Product used for unknown indication
     Dosage: 15 MG/KG

REACTIONS (3)
  - Hypogammaglobulinaemia [Unknown]
  - Product use issue [Unknown]
  - Off label use [Unknown]
